FAERS Safety Report 6234177-2 (Version None)
Quarter: 2009Q2

REPORT INFORMATION
  Report Type: 
  Country: None (occurrence: None)
  Receive Date: 20090616
  Receipt Date: 20090605
  Transmission Date: 20091009
  Serious: Yes (Life-Threatening, Hospitalization)
  Sender: FDA-Public Use
  Company Number: DSU-2009-01188

PATIENT
  Age: 65 Year
  Sex: Male

DRUGS (2)
  1. SEVICAR (OLMESARTAN/AMLODIPINE) (TABLET) [Suspect]
     Indication: HYPERTENSION
     Dosage: 20/5 MG (QHS), PER ORAL,
     Dates: start: 20090602, end: 20090602
  2. TRIATEC (RAMIPRIL) (TABLET) (RAMIPRIL) [Concomitant]

REACTIONS (6)
  - ANGIOEDEMA [None]
  - CYANOSIS [None]
  - DISCOMFORT [None]
  - DRUG HYPERSENSITIVITY [None]
  - SYNCOPE [None]
  - UPPER AIRWAY OBSTRUCTION [None]
